FAERS Safety Report 5240369-1 (Version None)
Quarter: 2007Q1

REPORT INFORMATION
  Report Type: 
  Country: None (occurrence: None)
  Receive Date: 20070219
  Receipt Date: 20070205
  Transmission Date: 20070707
  Serious: Yes (Other)
  Sender: FDA-Public Use
  Company Number: PHBS2007BR02479

PATIENT
  Age: 87 Year
  Sex: Female
  Weight: 63 kg

DRUGS (2)
  1. DIOVAN [Suspect]
     Indication: HYPERTENSION
     Dosage: 80 MG/DAY
     Route: 048
  2. GLUCOSAMINE [Concomitant]
     Indication: OSTEOARTHRITIS
     Dosage: 3 TABLETS/DAY
     Route: 048
     Dates: start: 20070201

REACTIONS (3)
  - FEMUR FRACTURE [None]
  - MYALGIA [None]
  - PROSTHESIS IMPLANTATION [None]
